FAERS Safety Report 19276758 (Version 2)
Quarter: 2021Q2

REPORT INFORMATION
  Report Type: Report from Study
  Country: None (occurrence: US)
  Receive Date: 20210519
  Receipt Date: 20210525
  Transmission Date: 20210717
  Serious: No
  Sender: FDA-Public Use
  Company Number: US-ABBVIE-21P-163-3902528-00

PATIENT
  Age: 44 Year
  Sex: Female
  Weight: 109 kg

DRUGS (5)
  1. TYLENOL EXTRA STRENGTH [Concomitant]
     Active Substance: ACETAMINOPHEN
     Indication: HEADACHE
     Route: 048
     Dates: start: 2017
  2. ELAGOLIX/ESTRADIOL/NORETHINDRONE ACETATE [Suspect]
     Active Substance: ELAGOLIX SODIUM\ESTRADIOL\NORETHINDRONE
     Indication: UTERINE LEIOMYOMA
     Dosage: ELAGOLIX 300MG/ESTRADIOL/NORETHINDRONE 1.0MG /0.5MG
     Route: 048
     Dates: start: 20191104, end: 20210330
  3. PLACEBO [Suspect]
     Active Substance: UNSPECIFIED INGREDIENT
     Indication: UTERINE LEIOMYOMA
     Route: 048
     Dates: start: 20181205, end: 20191103
  4. ELAGOLIX [Suspect]
     Active Substance: ELAGOLIX
     Indication: UTERINE LEIOMYOMA
     Dosage: PM DOSE
     Route: 048
     Dates: start: 20191104, end: 20210330
  5. TYLENOL EXTRA STRENGTH [Concomitant]
     Active Substance: ACETAMINOPHEN
     Indication: BACK PAIN

REACTIONS (1)
  - Bone loss [Not Recovered/Not Resolved]

NARRATIVE: CASE EVENT DATE: 20210323
